FAERS Safety Report 8308643-X (Version None)
Quarter: 2012Q2

REPORT INFORMATION
  Report Type: 
  Country: None (occurrence: None)
  Receive Date: 20120424
  Receipt Date: 20110407
  Transmission Date: 20120825
  Serious: Yes (Other)
  Sender: FDA-Public Use
  Company Number: US-TEVA-2010003256

PATIENT
  Sex: Male
  Weight: 77.18 kg

DRUGS (2)
  1. TEMAZEPAM [Concomitant]
  2. PROVIGIL [Suspect]
     Indication: NARCOLEPSY
     Dosage: 200 MILLIGRAM;
     Route: 048
     Dates: start: 19990101

REACTIONS (9)
  - ASTHENIA [None]
  - DRUG PRESCRIBING ERROR [None]
  - FATIGUE [None]
  - FALL [None]
  - SYNCOPE [None]
  - DRUG INEFFECTIVE [None]
  - FEELING ABNORMAL [None]
  - TOOTH FRACTURE [None]
  - NAUSEA [None]
